FAERS Safety Report 4972010-7 (Version None)
Quarter: 2006Q2

REPORT INFORMATION
  Report Type: 
  Country: None (occurrence: None)
  Receive Date: 20060413
  Receipt Date: 20060323
  Transmission Date: 20061013
  Serious: Yes (Hospitalization)
  Sender: FDA-Public Use
  Company Number: US-MERCK-0603USA04072

PATIENT
  Age: 46 Year
  Sex: Male
  Weight: 80 kg

DRUGS (11)
  1. VIOXX [Suspect]
     Indication: ARTHRITIS
     Route: 048
     Dates: start: 19990101, end: 20021101
  2. ALTACE [Concomitant]
     Route: 065
  3. ZOCOR [Concomitant]
     Route: 065
  4. AMARYL [Concomitant]
     Route: 065
  5. TRICOR [Concomitant]
     Route: 065
  6. PROTONIX [Concomitant]
     Route: 065
  7. CATAPRES [Concomitant]
     Route: 065
  8. PEPCID [Concomitant]
     Route: 065
  9. PLAVIX [Concomitant]
     Route: 065
  10. ASPIRIN [Concomitant]
     Route: 065
  11. INSULIN [Concomitant]
     Route: 065
     Dates: start: 20020101

REACTIONS (4)
  - ACUTE MYOCARDIAL INFARCTION [None]
  - ANXIETY [None]
  - CHEST PAIN [None]
  - HIATUS HERNIA [None]
